FAERS Safety Report 24055479 (Version 3)
Quarter: 2025Q1

REPORT INFORMATION
  Report Type: Spontaneous
  Country: US (occurrence: US)
  Receive Date: 20240705
  Receipt Date: 20250130
  Transmission Date: 20250408
  Serious: Yes (Death)
  Sender: LABORATOIRES SERB
  Company Number: US-SERB S.A.S.-2158871

PATIENT
  Sex: Female

DRUGS (3)
  1. VISTOGARD [Suspect]
     Active Substance: URIDINE TRIACETATE
     Indication: Vomiting
     Dates: start: 20240424
  2. VISTOGARD [Suspect]
     Active Substance: URIDINE TRIACETATE
     Indication: Nausea
  3. FLUOROURACIL [Suspect]
     Active Substance: FLUOROURACIL
     Dates: start: 20240416

REACTIONS (6)
  - Death [Fatal]
  - Therapy interrupted [Unknown]
  - Product use in unapproved indication [Unknown]
  - Inappropriate schedule of product administration [Unknown]
  - Nausea [Fatal]
  - Vomiting [Fatal]
